FAERS Safety Report 6210968-9 (Version None)
Quarter: 2009Q2

REPORT INFORMATION
  Report Type: 
  Country: None (occurrence: None)
  Receive Date: 20090602
  Receipt Date: 20070309
  Transmission Date: 20091009
  Serious: Yes (Other)
  Sender: FDA-Public Use
  Company Number: US-ASTRAZENECA-2006UW24892

PATIENT
  Age: 575 Month
  Sex: Male
  Weight: 89.8 kg

DRUGS (4)
  1. SEROQUEL [Suspect]
     Indication: SLEEP DISORDER
     Dosage: 100 - 400 MG, FLUCTUATING
     Route: 048
     Dates: start: 20041213
  2. DIAZEPAM [Concomitant]
     Route: 048
     Dates: start: 19900717
  3. EFFEXOR XR [Concomitant]
     Dates: start: 20050514
  4. GABAPENTIN [Concomitant]
     Dosage: 300 - 600 MG, FLUCTUATING
     Route: 048

REACTIONS (5)
  - DIABETES MELLITUS [None]
  - DIABETES MELLITUS INADEQUATE CONTROL [None]
  - ERECTILE DYSFUNCTION [None]
  - HYPERGLYCAEMIA [None]
  - NEUROPATHY PERIPHERAL [None]
